FAERS Safety Report 8264894-4 (Version None)
Quarter: 2012Q2

REPORT INFORMATION
  Report Type: 
  Country: None (occurrence: None)
  Receive Date: 20120406
  Receipt Date: 20120327
  Transmission Date: 20120825
  Serious: Yes (Life-Threatening, Hospitalization, Other)
  Sender: FDA-Public Use
  Company Number: JP-ABBOTT-12P-087-0907619-00

PATIENT
  Sex: Female
  Weight: 47 kg

DRUGS (8)
  1. GASMOTIN [Suspect]
     Indication: PRODUCT USED FOR UNKNOWN INDICATION
     Dosage: 15 MG DAILY
     Route: 048
  2. BISOLVON [Suspect]
     Indication: UPPER RESPIRATORY TRACT INFLAMMATION
     Dosage: 12 MG DAILY
     Route: 048
  3. ALBUMIN TANNATE [Interacting]
     Indication: PRODUCT USED FOR UNKNOWN INDICATION
     Dosage: 3 G DAILY
     Route: 048
  4. CLARITHROMYCIN [Suspect]
     Indication: UPPER RESPIRATORY TRACT INFLAMMATION
     Dosage: 400 MG DAILY
     Route: 048
  5. COLCHICINE [Interacting]
     Indication: BEHCET'S SYNDROME
     Dosage: 0.5 MG DAILY
     Route: 048
  6. CLONAZEPAM [Suspect]
     Indication: BORDERLINE PERSONALITY DISORDER
     Dosage: 2 MG DAILY
     Route: 048
  7. PROMAZINE HYDROCHLORIDE [Suspect]
     Indication: BORDERLINE PERSONALITY DISORDER
     Dosage: 11.5 MG DAILY
     Route: 048
  8. MUCODYNE [Suspect]
     Indication: UPPER RESPIRATORY TRACT INFLAMMATION
     Dosage: 1500 MG DAILY
     Route: 048

REACTIONS (11)
  - DRUG INTERACTION [None]
  - SUICIDE ATTEMPT [None]
  - TOXICITY TO VARIOUS AGENTS [None]
  - MULTI-ORGAN FAILURE [None]
  - RENAL IMPAIRMENT [None]
  - CARDIO-RESPIRATORY ARREST [None]
  - PANCYTOPENIA [None]
  - DISSEMINATED INTRAVASCULAR COAGULATION [None]
  - HEPATIC FUNCTION ABNORMAL [None]
  - SEPSIS [None]
  - ATELECTASIS [None]
